FAERS Safety Report 9024529 (Version 1)
Quarter: 2013Q1

REPORT INFORMATION
  Report Type: Spontaneous
  Country: US (occurrence: None)
  Receive Date: 20130122
  Receipt Date: 20130122
  Transmission Date: 20140127
  Serious: No
  Sender: FDA-Public Use
  Company Number: None

PATIENT
  Age: 54 Year
  Sex: Female
  Weight: 110.22 kg

DRUGS (2)
  1. METHYLPREDNISOLONE ACETATE [Suspect]
     Indication: SPINAL OSTEOARTHRITIS
     Dosage: 40MG PRN PERINEURAL
     Route: 053
     Dates: start: 20120717, end: 20120926
  2. METHYLPREDNISOLONE ACETATE [Suspect]
     Indication: OSTEOARTHRITIS
     Dosage: 40MG PRN PERINEURAL
     Route: 053
     Dates: start: 20120717, end: 20120926

REACTIONS (6)
  - Product quality issue [None]
  - Headache [None]
  - Nausea [None]
  - Pain [None]
  - Drug ineffective [None]
  - Neck pain [None]
